FAERS Safety Report 7951194-2 (Version None)
Quarter: 2011Q4

REPORT INFORMATION
  Report Type: 
  Country: None (occurrence: None)
  Receive Date: 20111201
  Receipt Date: 20111122
  Transmission Date: 20120403
  Serious: Yes (Hospitalization)
  Sender: FDA-Public Use
  Company Number: PHFR2010GB01537

PATIENT
  Sex: Female

DRUGS (7)
  1. CLOZARIL [Suspect]
     Dosage: 400 MG, UNK
     Route: 048
     Dates: start: 20101203
  2. ISMO [Concomitant]
     Dosage: 30 MG, BID
     Route: 048
  3. ZOPICLONE [Concomitant]
     Dosage: UNK
     Route: 048
  4. CLOZARIL [Suspect]
     Indication: SCHIZOPHRENIA
     Dosage: 400 MG, UNK
     Dates: start: 20091002, end: 20101129
  5. CITALOPRAM [Suspect]
     Indication: DEPRESSION
     Dosage: 20 MG, QD
     Route: 048
     Dates: end: 20100722
  6. SIMVASTATIN [Concomitant]
     Dosage: 60 MG, UNK
     Route: 048
  7. PROCHLORPERAZINE [Concomitant]
     Route: 048

REACTIONS (9)
  - OESOPHAGITIS [None]
  - FALL [None]
  - DIZZINESS [None]
  - GASTROINTESTINAL ULCER [None]
  - URINARY TRACT INFECTION [None]
  - GASTROINTESTINAL HAEMORRHAGE [None]
  - LOSS OF CONSCIOUSNESS [None]
  - HAEMATEMESIS [None]
  - OESOPHAGEAL ULCER [None]
